FAERS Safety Report 4973283-7 (Version None)
Quarter: 2006Q2

REPORT INFORMATION
  Report Type: 
  Country: None (occurrence: None)
  Receive Date: 20060414
  Receipt Date: 20051017
  Transmission Date: 20061013
  Serious: Yes (Death)
  Sender: FDA-Public Use
  Company Number: US-MERCK-0510USA07719

PATIENT
  Age: 57 Year
  Sex: Male
  Weight: 75 kg

DRUGS (3)
  1. VIOXX [Suspect]
     Route: 048
  2. ASPIRIN [Concomitant]
     Route: 065
  3. LAMISIL [Concomitant]
     Route: 048

REACTIONS (6)
  - ARTERIOSCLEROSIS CORONARY ARTERY [None]
  - BENIGN PROSTATIC HYPERPLASIA [None]
  - CHOLESTEROSIS [None]
  - OEDEMA [None]
  - PULMONARY CONGESTION [None]
  - SHOULDER PAIN [None]
